FAERS Safety Report 18094702 (Version 1)
Quarter: 2020Q3

REPORT INFORMATION
  Report Type: Other
  Country: US (occurrence: US)
  Receive Date: 20200730
  Receipt Date: 20200730
  Transmission Date: 20201103
  Serious: No
  Sender: FDA-Public Use
  Company Number: US-CADILA HEALTHCARE LIMITED-US-ZYDUS-052954

PATIENT

DRUGS (1)
  1. AMITRIPTYLINE 75 MG TABLET [Suspect]
     Active Substance: AMITRIPTYLINE HYDROCHLORIDE
     Indication: PRODUCT USED FOR UNKNOWN INDICATION
     Dosage: 75 MILLIGRAM
     Route: 048

REACTIONS (4)
  - Vision blurred [Unknown]
  - Drug ineffective [Unknown]
  - Dizziness [Unknown]
  - Migraine [Unknown]

NARRATIVE: CASE EVENT DATE: 202006
